FAERS Safety Report 9671964 (Version 1)
Quarter: 2013Q4

REPORT INFORMATION
  Report Type: Other
  Country: US (occurrence: US)
  Receive Date: 20131106
  Receipt Date: 20131106
  Transmission Date: 20140711
  Serious: No
  Sender: FDA-Public Use
  Company Number: US-ENDO PHARMACEUTICALS INC.-LISI20110022

PATIENT
  Sex: Female

DRUGS (5)
  1. LISINOPRIL TABLETS 10MG [Suspect]
     Dosage: UNKNOWN
     Route: 048
  2. LISINOPRIL TABLETS 20MG [Suspect]
     Dosage: UNKNOWN
     Route: 048
  3. LISINOPRIL TABLETS 20MG [Suspect]
  4. NORVASC [Concomitant]
  5. BYSTOLIC [Concomitant]

REACTIONS (2)
  - Drug ineffective [Unknown]
  - Oedema peripheral [Unknown]
